FAERS Safety Report 20611657 (Version 1)
Quarter: 2022Q1

REPORT INFORMATION
  Report Type: Spontaneous
  Country: US (occurrence: US)
  Receive Date: 20220318
  Receipt Date: 20220318
  Transmission Date: 20220423
  Serious: Yes (Hospitalization)
  Sender: FDA-Public Use
  Company Number: US-LUPIN PHARMACEUTICALS INC.-2022-03754

PATIENT
  Age: 79 Year
  Sex: Female

DRUGS (14)
  1. CALCIUM [Suspect]
     Active Substance: CALCIUM
     Indication: Vasoplegia syndrome
     Dosage: 1 GRAM
     Route: 065
  2. PHENYLEPHRINE [Suspect]
     Active Substance: PHENYLEPHRINE HYDROCHLORIDE
     Indication: Vasoplegia syndrome
     Dosage: UNK, BETWEEN 05:45 AND 06:26; TOTAL 26ML OF 100MICROG/ML DILUTION; 7 DOSES
     Route: 042
  3. NOREPINEPHRINE [Suspect]
     Active Substance: NOREPINEPHRINE
     Indication: Vasoplegia syndrome
     Dosage: 0.1 MICROGRAM/KILOGRAM
     Route: 065
  4. NOREPINEPHRINE [Suspect]
     Active Substance: NOREPINEPHRINE
     Dosage: 0.5 MICROGRAM/KILOGRAM
     Route: 065
  5. VASOPRESSIN [Suspect]
     Active Substance: VASOPRESSIN
     Indication: Vasoplegia syndrome
     Dosage: 0.04 UNITS/MIN
     Route: 065
  6. VASOPRESSIN [Suspect]
     Active Substance: VASOPRESSIN
     Dosage: 0.08 UNITS/MIN
     Route: 065
  7. EPINEPHRINE [Suspect]
     Active Substance: EPINEPHRINE
     Indication: Vasoplegia syndrome
     Dosage: 0.01 MICROGRAM/KILOGRAM
     Route: 065
  8. SODIUM CHLORIDE [Suspect]
     Active Substance: SODIUM CHLORIDE
     Indication: Vasoplegia syndrome
     Dosage: 1500 MILLILITER
     Route: 042
  9. HYDROXOCOBALAMIN [Suspect]
     Active Substance: HYDROXOCOBALAMIN
     Indication: Vasoplegia syndrome
     Dosage: 5 GRAM, VIA CENTRAL LINE, OVER 10 MINUTES
     Route: 065
  10. METHYLENE BLUE [Suspect]
     Active Substance: METHYLENE BLUE
     Indication: Vasoplegia syndrome
     Dosage: 77.5 MILLIGRAM (50 MG/M2)
     Route: 065
  11. PROPOFOL [Concomitant]
     Active Substance: PROPOFOL
     Indication: Sedation
     Dosage: UNK
     Route: 065
  12. NICARDIPINE [Concomitant]
     Active Substance: NICARDIPINE
     Indication: Blood pressure systolic
     Dosage: UNK
     Route: 065
  13. NIMODIPINE [Concomitant]
     Active Substance: NIMODIPINE
     Indication: Subarachnoid haemorrhage
     Dosage: 60 MILLIGRAM, VIA OROGASTRIC TUBE
     Route: 065
  14. METOPROLOL [Concomitant]
     Active Substance: METOPROLOL
     Indication: Hypertension
     Dosage: 12.5 MG, QD, EXTENDED RELEASE
     Route: 065

REACTIONS (2)
  - Drug ineffective for unapproved indication [Unknown]
  - Off label use [Unknown]
